FAERS Safety Report 4336599-3 (Version None)
Quarter: 2004Q2

REPORT INFORMATION
  Report Type: 
  Country: None (occurrence: None)
  Receive Date: 20040407
  Receipt Date: 20040318
  Transmission Date: 20050107
  Serious: Yes (Other)
  Sender: FDA-Public Use
  Company Number: USA030434848

PATIENT
  Age: 72 Year
  Sex: Female
  Weight: 46 kg

DRUGS (6)
  1. FORTEO [Suspect]
     Indication: OSTEOPOROSIS
     Dosage: 20 UG/1 DAY
     Dates: start: 20030217
  2. AMBIEN [Concomitant]
  3. FOSAMAX [Concomitant]
  4. MULTI-VITAMIN [Concomitant]
  5. TYLENOL PM [Concomitant]
  6. VITAMIN E [Concomitant]

REACTIONS (13)
  - AGITATION [None]
  - ARTHRALGIA [None]
  - CHILLS [None]
  - FALL [None]
  - HEADACHE [None]
  - INSOMNIA [None]
  - MUSCLE CRAMP [None]
  - NERVOUSNESS [None]
  - PHARMACEUTICAL PRODUCT COMPLAINT [None]
  - POLLAKIURIA [None]
  - UPPER LIMB FRACTURE [None]
  - URINE ODOUR ABNORMAL [None]
  - WEIGHT DECREASED [None]
